FAERS Safety Report 7750074-5 (Version None)
Quarter: 2011Q3

REPORT INFORMATION
  Report Type: 
  Country: None (occurrence: None)
  Receive Date: 20110914
  Receipt Date: 20110912
  Transmission Date: 20111222
  Serious: No
  Sender: FDA-Public Use
  Company Number: US-PFIZER INC-2011214149

PATIENT
  Sex: Female
  Weight: 106.58 kg

DRUGS (2)
  1. ADVIL CONGESTION RELIEF [Suspect]
     Indication: HEADACHE
     Dosage: UNK
     Route: 048
     Dates: start: 20110908, end: 20110910
  2. ADVIL CONGESTION RELIEF [Suspect]
     Indication: SINUS DISORDER
     Dosage: UNK
     Route: 048
     Dates: start: 20110501, end: 20110101

REACTIONS (1)
  - DRUG INEFFECTIVE [None]
